FAERS Safety Report 16744777 (Version 1)
Quarter: 2019Q4

REPORT INFORMATION
  Report Type: Spontaneous
  Country: US (occurrence: US)
  Receive Date: 20190826
  Receipt Date: 20190826
  Transmission Date: 20200122
  Serious: Yes (Life-Threatening, Hospitalization)
  Sender: FDA-Public Use
  Company Number: None

PATIENT
  Age: 77 Year
  Sex: Male
  Weight: 70.2 kg

DRUGS (9)
  1. AMLODIPINE BESYLATE. [Concomitant]
     Active Substance: AMLODIPINE BESYLATE
  2. OPDIVO [Concomitant]
     Active Substance: NIVOLUMAB
  3. VITAMIN D [Concomitant]
     Active Substance: VITAMIN D NOS
  4. LIPITOR [Concomitant]
     Active Substance: ATORVASTATIN CALCIUM
  5. TAMSULOSIN [Concomitant]
     Active Substance: TAMSULOSIN
  6. NINLARO [Concomitant]
     Active Substance: IXAZOMIB CITRATE
  7. VALSARTAN 320 MG [Suspect]
     Active Substance: VALSARTAN
     Dosage: ?          QUANTITY:1 TABLET(S);?
     Route: 048
  8. HYDRALAZINE [Concomitant]
     Active Substance: HYDRALAZINE HYDROCHLORIDE
  9. ELIQUIS [Concomitant]
     Active Substance: APIXABAN

REACTIONS (5)
  - Loss of personal independence in daily activities [None]
  - Heart rate decreased [None]
  - Fatigue [None]
  - Cardiac disorder [None]
  - Atrial fibrillation [None]

NARRATIVE: CASE EVENT DATE: 20190729
